FAERS Safety Report 19979699 (Version 2)
Quarter: 2021Q4

REPORT INFORMATION
  Report Type: Report from Study
  Country: JP (occurrence: JP)
  Receive Date: 20211020
  Receipt Date: 20211117
  Transmission Date: 20220303
  Serious: Yes (Death)
  Sender: FDA-Public Use
  Company Number: JP-JNJFOC-20211032454

PATIENT
  Age: 56 Year
  Sex: Male

DRUGS (11)
  1. OPSUMIT [Suspect]
     Active Substance: MACITENTAN
     Indication: Pulmonary arterial hypertension
     Route: 048
     Dates: start: 20170623, end: 20180528
  2. UPTRAVI [Concomitant]
     Active Substance: SELEXIPAG
     Route: 048
  3. ADCIRCA [Concomitant]
     Active Substance: TADALAFIL
     Indication: Pulmonary arterial hypertension
     Route: 048
  4. OXYGEN [Concomitant]
     Active Substance: OXYGEN
     Dosage: DOSE UNKNOWN
     Route: 055
  5. NEXIUM [Concomitant]
     Active Substance: ESOMEPRAZOLE MAGNESIUM
     Indication: Gastric ulcer
     Route: 048
  6. CARVEDILOL [Concomitant]
     Active Substance: CARVEDILOL
     Indication: Right ventricular failure
     Route: 048
  7. EPLERENONE [Concomitant]
     Active Substance: EPLERENONE
     Indication: Right ventricular failure
     Route: 048
  8. GLYCOPYRRONIUM\INDACATEROL [Concomitant]
     Active Substance: GLYCOPYRRONIUM\INDACATEROL
     Indication: Emphysema
     Route: 055
  9. PRAVASTATIN SODIUM [Concomitant]
     Active Substance: PRAVASTATIN SODIUM
     Indication: Dyslipidaemia
     Dosage: DOSE UNKNOWN
     Route: 048
  10. NESINA [Concomitant]
     Active Substance: ALOGLIPTIN BENZOATE
     Indication: Diabetes mellitus
     Dosage: DOSE UNKNOWN
     Route: 048
  11. FUROSEMIDE [Concomitant]
     Active Substance: FUROSEMIDE
     Indication: Right ventricular failure
     Route: 048

REACTIONS (1)
  - Pulmonary hypertension [Fatal]
